FAERS Safety Report 4732303-5 (Version None)
Quarter: 2005Q3

REPORT INFORMATION
  Report Type: 
  Country: None (occurrence: None)
  Receive Date: 20050726
  Receipt Date: 20050303
  Transmission Date: 20060218
  Serious: Yes (Other)
  Sender: FDA-Public Use
  Company Number: 05GER0076

PATIENT
  Age: 77 Year
  Sex: Female

DRUGS (3)
  1. AGGRASTAT [Suspect]
     Indication: ANGINA UNSTABLE
     Dosage: 7 ML/H
     Dates: start: 20041204, end: 20041204
  2. AGGRASTAT [Suspect]
     Indication: MYOCARDIAL INFARCTION
     Dosage: 7 ML/H
     Dates: start: 20041204, end: 20041204
  3. HEPARIN [Concomitant]

REACTIONS (1)
  - THROMBOCYTOPENIA [None]
